FAERS Safety Report 23337975 (Version 1)
Quarter: 2023Q4

REPORT INFORMATION
  Report Type: Spontaneous
  Country: US (occurrence: None)
  Receive Date: 20231222
  Receipt Date: 20231222
  Transmission Date: 20240110
  Serious: Yes (Disabling)
  Sender: FDA-Public Use
  Company Number: None

PATIENT
  Age: 43 Year
  Sex: Female
  Weight: 99 kg

DRUGS (13)
  1. GABAPENTIN [Suspect]
     Active Substance: GABAPENTIN
     Indication: Off label use
     Dosage: OTHER QUANTITY : 3 CAPSULE(S);?FREQUENCY : EVERY 6 HOURS;?
     Route: 048
     Dates: start: 20110701, end: 20190301
  2. GABAPENTIN [Suspect]
     Active Substance: GABAPENTIN
     Indication: Pain
  3. OXYCODONE [Concomitant]
     Active Substance: OXYCODONE
  4. UBRELVY [Concomitant]
     Active Substance: UBROGEPANT
  5. MYDAYIS [Concomitant]
     Active Substance: AMPHETAMINE ASPARTATE\AMPHETAMINE SULFATE\DEXTROAMPHETAMINE SACCHARATE\DEXTROAMPHETAMINE SULFATE
  6. COMPAZINE [Concomitant]
     Active Substance: PROCHLORPERAZINE MALEATE
  7. OMEPRAZOLE [Concomitant]
     Active Substance: OMEPRAZOLE
  8. DEVICE [Concomitant]
     Active Substance: DEVICE
  9. multiple braces [Concomitant]
  10. Walker with seat [Concomitant]
  11. IBUPROFEN [Concomitant]
     Active Substance: IBUPROFEN
  12. Cingular [Concomitant]
  13. MELATONIN [Concomitant]
     Active Substance: MELATONIN

REACTIONS (12)
  - Off label use [None]
  - Weight increased [None]
  - Tooth injury [None]
  - Dental caries [None]
  - Cognitive disorder [None]
  - Memory impairment [None]
  - Impulse-control disorder [None]
  - Memory impairment [None]
  - Disturbance in social behaviour [None]
  - Judgement impaired [None]
  - Quality of life decreased [None]
  - Loss of personal independence in daily activities [None]
